FAERS Safety Report 4659529-3 (Version None)
Quarter: 2005Q2

REPORT INFORMATION
  Report Type: 
  Country: None (occurrence: None)
  Receive Date: 20050510
  Receipt Date: 20050429
  Transmission Date: 20051028
  Serious: Yes (Disabling)
  Sender: FDA-Public Use
  Company Number: 2005069247

PATIENT
  Age: 62 Year
  Sex: Female

DRUGS (10)
  1. AMLODIPINE [Suspect]
     Indication: ILL-DEFINED DISORDER
     Dosage: 10 MG (10 MG, 1 IN 1 D), ORAL
     Route: 048
  2. PENTOXIFYLLINE [Suspect]
     Indication: ILL-DEFINED DISORDER
     Dosage: 800 MG (400 MG, 2 IN 1 D),ORAL
     Route: 048
  3. BULFOMEDIL                  (BULFORMEDIL) [Suspect]
     Indication: ILL-DEFINED DISORDER
     Dosage: 1 DF (2 IN 1 D), ORAL
     Route: 048
  4. BISOPROLOL (BISOPROLOL) [Suspect]
     Indication: ILL-DEFINED DISORDER
     Dosage: 1.5 DF (1 IN 1D), ORAL
     Route: 048
  5. HYDROXYCHLOROQUINE SULFATE (HYDROXYCLOROQUINE SULFATE) [Suspect]
     Indication: SYSTEMIC LUPUS ERYTHEMATOSUS
     Dosage: 1 DF (2 IN 1 D),ORAL
     Route: 048
     Dates: start: 19910101, end: 20041015
  6. CLOPIDOGREL BISULFATE [Suspect]
     Indication: ILL-DEFINED DISORDER
     Dosage: 1 DF (1 IN 1 D), ORAL
     Route: 048
  7. FERRO-FOLSAN                     (FERROUS SULATE, FOLIC ACID) [Concomitant]
  8. RAMIPRIL [Concomitant]
  9. EPOETIN BETA         (EPOETIN BETA) [Concomitant]
  10. FUROSEMIDE [Concomitant]

REACTIONS (5)
  - MACULOPATHY [None]
  - POISONING [None]
  - RETINAL DISORDER [None]
  - SCOTOMA [None]
  - VISUAL ACUITY REDUCED [None]
